FAERS Safety Report 20240134 (Version 2)
Quarter: 2022Q1

REPORT INFORMATION
  Report Type: Spontaneous
  Country: GR (occurrence: GR)
  Receive Date: 20211228
  Receipt Date: 20220209
  Transmission Date: 20220424
  Serious: No
  Sender: FDA-Public Use
  Company Number: GR-PFIZER INC-202101704046

PATIENT
  Age: 11 Year
  Sex: Male
  Weight: 35 kg

DRUGS (1)
  1. GENOTROPIN [Suspect]
     Active Substance: SOMATROPIN
     Indication: Growth hormone deficiency
     Dosage: 7.0 MG/6 DAYS
     Route: 058
     Dates: start: 201811

REACTIONS (2)
  - Drug dose omission by device [Unknown]
  - Device issue [Unknown]
